FAERS Safety Report 5909062-3 (Version None)
Quarter: 2008Q4

REPORT INFORMATION
  Report Type: 
  Country: None (occurrence: None)
  Receive Date: 20081001
  Receipt Date: 20080904
  Transmission Date: 20090506
  Serious: No
  Sender: FDA-Public Use
  Company Number: TIF2008A00110

PATIENT
  Age: 67 Year
  Sex: Male

DRUGS (2)
  1. LANSOPRAZOLE [Suspect]
     Indication: REFLUX OESOPHAGITIS
     Dosage: 15 MG, 30 MG
     Dates: start: 20030101
  2. LANSOPRAZOLE [Suspect]
     Indication: REFLUX OESOPHAGITIS
     Dosage: 15 MG, 30 MG
     Dates: start: 20080501

REACTIONS (3)
  - CATARACT OPERATION [None]
  - VISION BLURRED [None]
  - VOCAL CORD DISORDER [None]
